FAERS Safety Report 24182807 (Version 2)
Quarter: 2024Q3

REPORT INFORMATION
  Report Type: Other
  Country: GB (occurrence: GB)
  Receive Date: 20240807
  Receipt Date: 20240808
  Transmission Date: 20241017
  Serious: Yes (Congenital Anomaly, Other)
  Sender: ZYDUS PHARM
  Company Number: None

PATIENT

DRUGS (1)
  1. TOPIRAMATE [Suspect]
     Active Substance: TOPIRAMATE
     Indication: Epilepsy
     Dosage: UNK
     Route: 064

REACTIONS (5)
  - Renal fusion anomaly [Not Recovered/Not Resolved]
  - Broad autism phenotype [Not Recovered/Not Resolved]
  - Foot deformity [Not Recovered/Not Resolved]
  - Congenital hand malformation [Not Recovered/Not Resolved]
  - Foetal exposure during pregnancy [Unknown]
